FAERS Safety Report 18552232 (Version 1)
Quarter: 2020Q4

REPORT INFORMATION
  Report Type: Spontaneous
  Country: ES (occurrence: ES)
  Receive Date: 20201127
  Receipt Date: 20201127
  Transmission Date: 20210114
  Serious: Yes (Other)
  Sender: FDA-Public Use
  Company Number: ES-SUN PHARMACEUTICAL INDUSTRIES LTD-2020RR-269068

PATIENT
  Age: 14 Year
  Sex: Female
  Weight: 53 kg

DRUGS (4)
  1. IMIPENEM [Suspect]
     Active Substance: IMIPENEM
     Indication: CHRONIC GRANULOMATOUS DISEASE
     Dosage: 1 DOSAGE FORM, TID
     Route: 042
     Dates: start: 20160504, end: 20160511
  2. TRIMETOPRIMA + SULFAMETOXAZOL = COTRIMOXAZOL [Concomitant]
     Indication: CHRONIC GRANULOMATOUS DISEASE
     Dosage: 1 DOSAGE FORM, BID
     Route: 042
     Dates: start: 20140604
  3. CLARITHROMYCIN. [Suspect]
     Active Substance: CLARITHROMYCIN
     Indication: CHRONIC GRANULOMATOUS DISEASE
     Dosage: 500 MILLIGRAM, BID
     Route: 048
     Dates: start: 20160504, end: 20160506
  4. AMBISOME [Suspect]
     Active Substance: AMPHOTERICIN B
     Indication: CHRONIC GRANULOMATOUS DISEASE
     Dosage: 270 MILLIGRAM, DAILY
     Route: 042
     Dates: start: 20160504, end: 20160512

REACTIONS (2)
  - Hypokalaemia [Recovered/Resolved]
  - Vomiting [Recovered/Resolved]

NARRATIVE: CASE EVENT DATE: 201605
